FAERS Safety Report 8967752 (Version 1)
Quarter: 2012Q4

REPORT INFORMATION
  Report Type: Spontaneous
  Country: US (occurrence: None)
  Receive Date: 20121207
  Receipt Date: 20121207
  Transmission Date: 20130627
  Serious: Yes (Death)
  Sender: FDA-Public Use
  Company Number: FK201203579

PATIENT
  Age: 63 Year
  Sex: Female
  Weight: 133 kg

DRUGS (5)
  1. CLINDAMYCIN [Suspect]
     Indication: POST PROCEDURAL INFECTION
     Dosage: Unknown, Unknown, infection
  2. NAFCILLIN (NAFCILLIN) [Concomitant]
  3. LEVOTHYROXINE (LEVOFLOXACIN) [Concomitant]
  4. ATROVASTATIN (ATORVASTATIN) [Concomitant]
  5. ACETAMINOPHEN-HYDROCOCONE(PROCET/015542010) [Concomitant]

REACTIONS (9)
  - Drug reaction with eosinophilia and systemic symptoms [None]
  - Pancreatitis [None]
  - Renal failure acute [None]
  - International normalised ratio increased [None]
  - Multi-organ failure [None]
  - Nephritis allergic [None]
  - Metabolic acidosis [None]
  - Glomerulonephritis [None]
  - Renal tubular necrosis [None]
